FAERS Safety Report 25626370 (Version 1)
Quarter: 2025Q3

REPORT INFORMATION
  Report Type: Spontaneous
  Country: AU (occurrence: AU)
  Receive Date: 20250731
  Receipt Date: 20250731
  Transmission Date: 20251020
  Serious: Yes (Hospitalization, Other)
  Sender: RANBAXY
  Company Number: AU-SUN PHARMACEUTICAL INDUSTRIES LTD-2025R1-519370

PATIENT
  Age: 47 Year
  Sex: Male

DRUGS (5)
  1. ASPIRIN [Suspect]
     Active Substance: ASPIRIN
     Indication: Antiplatelet therapy
     Route: 065
  2. RIVAROXABAN [Suspect]
     Active Substance: RIVAROXABAN
     Indication: Antiplatelet therapy
     Route: 065
  3. RIVAROXABAN [Suspect]
     Active Substance: RIVAROXABAN
     Route: 065
  4. ROSUVASTATIN [Suspect]
     Active Substance: ROSUVASTATIN
     Indication: Antiplatelet therapy
     Route: 065
  5. ROSUVASTATIN [Suspect]
     Active Substance: ROSUVASTATIN
     Route: 065

REACTIONS (2)
  - Pain in extremity [Unknown]
  - Drug ineffective [Unknown]
